FAERS Safety Report 4604946-0 (Version None)
Quarter: 2005Q1

REPORT INFORMATION
  Report Type: 
  Country: None (occurrence: None)
  Receive Date: 20050311
  Receipt Date: 20050303
  Transmission Date: 20050727
  Serious: Yes (Life-Threatening)
  Sender: FDA-Public Use
  Company Number: US-JNJFOC-20050205054

PATIENT
  Sex: Male
  Weight: 79.38 kg

DRUGS (10)
  1. DURAGESIC-100 [Suspect]
     Route: 062
     Dates: start: 20000101, end: 20050219
  2. OXYCODONE HCL [Concomitant]
     Indication: DRUG USE FOR UNKNOWN INDICATION
     Route: 049
  3. KLONOPIN [Concomitant]
     Route: 049
  4. KLONOPIN [Concomitant]
     Indication: DRUG USE FOR UNKNOWN INDICATION
     Route: 049
  5. VENLAFAXINE HCL [Concomitant]
     Indication: DRUG USE FOR UNKNOWN INDICATION
     Route: 049
  6. TEQUETIAPINE [Concomitant]
     Indication: DRUG USE FOR UNKNOWN INDICATION
     Route: 049
  7. TRAZADONE [Concomitant]
     Indication: DRUG USE FOR UNKNOWN INDICATION
     Route: 049
  8. DOCUSATE SODIUM [Concomitant]
     Indication: DRUG USE FOR UNKNOWN INDICATION
     Route: 049
  9. IMITREX [Concomitant]
     Indication: DRUG USE FOR UNKNOWN INDICATION
     Route: 049
  10. MARIJUANA [Concomitant]
     Indication: DRUG USE FOR UNKNOWN INDICATION
     Dosage: EVERY NIGHT
     Route: 055

REACTIONS (10)
  - CHEST PAIN [None]
  - DIARRHOEA [None]
  - DYSPNOEA [None]
  - FAECES HARD [None]
  - HYPERTENSION [None]
  - PAIN [None]
  - SUICIDAL IDEATION [None]
  - SUICIDE ATTEMPT [None]
  - VOMITING [None]
  - WEIGHT DECREASED [None]
